FAERS Safety Report 6454567-2 (Version None)
Quarter: 2009Q4

REPORT INFORMATION
  Report Type: 
  Country: None (occurrence: None)
  Receive Date: 20091118
  Receipt Date: 20091110
  Transmission Date: 20100525
  Serious: Yes (Other)
  Sender: FDA-Public Use
  Company Number: 2009SP036165

PATIENT
  Age: 8 Year
  Sex: Male

DRUGS (2)
  1. CLARITIN [Suspect]
     Indication: SEASONAL ALLERGY
     Dosage: PO
     Route: 048
  2. VITAMINS [Concomitant]

REACTIONS (2)
  - PHARYNGEAL OEDEMA [None]
  - WEIGHT INCREASED [None]
